FAERS Safety Report 8411574-8 (Version None)
Quarter: 2012Q2

REPORT INFORMATION
  Report Type: 
  Country: None (occurrence: None)
  Receive Date: 20120605
  Receipt Date: 20120510
  Transmission Date: 20120825
  Serious: No
  Sender: FDA-Public Use
  Company Number: US-AMGEN-USASP2012024909

PATIENT
  Age: 69 Year
  Sex: Female

DRUGS (1)
  1. ENBREL [Suspect]
     Indication: PSORIASIS
     Dosage: 50 MG, 2 TIMES/WK
     Dates: start: 20120223, end: 20120417

REACTIONS (5)
  - RHINORRHOEA [None]
  - PAIN OF SKIN [None]
  - DERMATITIS EXFOLIATIVE [None]
  - CHILLS [None]
  - PSORIASIS [None]
